FAERS Safety Report 12415327 (Version 1)
Quarter: 2016Q2

REPORT INFORMATION
  Report Type: Spontaneous
  Country: US (occurrence: US)
  Receive Date: 20160530
  Receipt Date: 20160530
  Transmission Date: 20160815
  Serious: No
  Sender: FDA-Public Use
  Company Number: US-PFIZER INC-2016236309

PATIENT
  Age: 83 Year
  Sex: Female

DRUGS (6)
  1. VINCRISTINE SULFATE. [Suspect]
     Active Substance: VINCRISTINE SULFATE
     Dosage: UNK (MAINTENANCE THERAPY WITH POMP)
     Dates: start: 201501, end: 201512
  2. METHOTREXATE SODIUM. [Suspect]
     Active Substance: METHOTREXATE SODIUM
     Indication: B-CELL TYPE ACUTE LEUKAEMIA
     Dosage: UNK (MAINTENANCE THERAPY WITH POMP)
     Dates: start: 201501, end: 201512
  3. 6-MP [Suspect]
     Active Substance: MERCAPTOPURINE
     Indication: B-CELL TYPE ACUTE LEUKAEMIA
     Dosage: UNK (MAINTENANCE THERAPY WITH POMP)
     Dates: start: 201501, end: 201512
  4. VINCRISTINE SULFATE. [Suspect]
     Active Substance: VINCRISTINE SULFATE
     Indication: B-CELL TYPE ACUTE LEUKAEMIA
     Dosage: UNK (4 CYCLES OF DOSE REDUCED MODIFIED HYPERCVAD REGIMEN (1 IN 1 CYCLICAL))
     Dates: start: 201403, end: 201501
  5. METHOTREXATE SODIUM. [Suspect]
     Active Substance: METHOTREXATE SODIUM
     Indication: ACUTE LYMPHOCYTIC LEUKAEMIA
  6. PREDNISONE. [Suspect]
     Active Substance: PREDNISONE
     Indication: B-CELL TYPE ACUTE LEUKAEMIA
     Dosage: UNK (MAINTENANCE THERAPY WITH POMP)
     Dates: start: 201501, end: 201512

REACTIONS (2)
  - Disease progression [Unknown]
  - B-cell type acute leukaemia [Unknown]
